FAERS Safety Report 9096535 (Version 1)
Quarter: 2013Q1

REPORT INFORMATION
  Report Type: Spontaneous
  Country: US (occurrence: None)
  Receive Date: 20130123
  Receipt Date: 20130123
  Transmission Date: 20140127
  Serious: No
  Sender: FDA-Public Use
  Company Number: AEUSA201200019

PATIENT
  Age: 31 Year
  Sex: Female

DRUGS (2)
  1. ALBUMIN [Suspect]
     Indication: PRODUCT USED FOR UNKNOWN INDICATION
     Route: 042
  2. HEMATIN [Suspect]
     Indication: PORPHYRIA ACUTE
     Route: 042

REACTIONS (1)
  - Headache [None]
